FAERS Safety Report 7523213-9 (Version None)
Quarter: 2011Q2

REPORT INFORMATION
  Report Type: 
  Country: None (occurrence: None)
  Receive Date: 20110603
  Receipt Date: 20110531
  Transmission Date: 20111010
  Serious: Yes (Other)
  Sender: FDA-Public Use
  Company Number: US-PFIZER INC-2011071472

PATIENT
  Sex: Female
  Weight: 49.887 kg

DRUGS (3)
  1. PRISTIQ [Suspect]
     Indication: ANXIETY
     Dosage: 50 MG, 1X/DAY
     Route: 048
     Dates: start: 20110101
  2. RANITIDINE [Concomitant]
     Dosage: 150MG
  3. PRISTIQ [Suspect]
     Indication: DEPRESSION

REACTIONS (1)
  - COELIAC DISEASE [None]
